FAERS Safety Report 7385472-5 (Version None)
Quarter: 2011Q1

REPORT INFORMATION
  Report Type: 
  Country: None (occurrence: None)
  Receive Date: 20110330
  Receipt Date: 20110118
  Transmission Date: 20110831
  Serious: Yes (Other)
  Sender: FDA-Public Use
  Company Number: US-AMGEN-USASP2010009467

PATIENT
  Age: 49 Year
  Sex: Male
  Weight: 90.249 kg

DRUGS (2)
  1. PREDNISONE [Concomitant]
  2. NPLATE [Suspect]
     Indication: IDIOPATHIC THROMBOCYTOPENIC PURPURA
     Dosage: 200 A?G, QWK
     Route: 058
     Dates: start: 20100618, end: 20100827

REACTIONS (1)
  - DRUG INEFFECTIVE [None]
